FAERS Safety Report 6182942-2 (Version None)
Quarter: 2009Q2

REPORT INFORMATION
  Report Type: 
  Country: None (occurrence: None)
  Receive Date: 20090505
  Receipt Date: 20090420
  Transmission Date: 20091009
  Serious: Yes (Hospitalization)
  Sender: FDA-Public Use
  Company Number: 09-000643

PATIENT
  Age: 33 Year
  Sex: Female

DRUGS (1)
  1. DORYX [Suspect]
     Indication: PELVIC INFLAMMATORY DISEASE
     Dosage: 100 MG, BID

REACTIONS (4)
  - GASTRIC ULCER [None]
  - GASTRITIS [None]
  - OESOPHAGEAL ULCER [None]
  - OESOPHAGITIS [None]
